FAERS Safety Report 8734958 (Version 2)
Quarter: 2012Q4

REPORT INFORMATION
  Report Type: 
  Country: JP (occurrence: JP)
  Receive Date: 20120821
  Receipt Date: 20121003
  Transmission Date: 20130627
  Serious: Yes (Death, Hospitalization)
  Sender: FDA-Public Use
  Company Number: JP-PFIZER INC-2012203411

PATIENT
  Age: 70 Year
  Sex: Male

DRUGS (8)
  1. TAKEPRON OD [Suspect]
     Indication: GASTROOESOPHAGEAL REFLUX DISEASE
     Dosage: 15 mg, 1x/day
     Route: 048
     Dates: start: 20100126, end: 20120717
  2. AMLODIN [Suspect]
     Indication: HYPERTENSION
     Dosage: 2.5 mg, 1x/day
     Route: 048
     Dates: start: 200910, end: 20120711
  3. BIO-THREE [Suspect]
     Indication: FUNCTIONAL GASTROINTESTINAL DISORDER
     Dosage: 3 Sachet (1 Sachet, 3 in 1 D)
     Route: 048
     Dates: start: 20120619
  4. PREDONINE [Concomitant]
     Dosage: UNK
     Route: 048
  5. ROPION [Concomitant]
     Dosage: As required
     Route: 042
     Dates: start: 20120714, end: 20120716
  6. ROPION [Concomitant]
     Dosage: 3 in 1 D
     Route: 042
     Dates: start: 20120717
  7. BFLUID [Concomitant]
     Dosage: 500 ml , 1 D
     Route: 041
  8. KN NO.3 [Concomitant]
     Dosage: 500 ml, l D
     Route: 041

REACTIONS (3)
  - General physical health deterioration [Fatal]
  - Diarrhoea [Fatal]
  - Pain [None]
